FAERS Safety Report 9283290 (Version 2)
Quarter: 2013Q2

REPORT INFORMATION
  Report Type: Spontaneous
  Country: FR (occurrence: FR)
  Receive Date: 20130510
  Receipt Date: 20130520
  Transmission Date: 20140414
  Serious: Yes (Death, Hospitalization)
  Sender: FDA-Public Use
  Company Number: PHHY2013FR045403

PATIENT
  Age: 64 Year
  Sex: Male

DRUGS (9)
  1. AFINITOR [Suspect]
     Indication: INSULINOMA
     Dosage: 10 MG, QD
     Route: 048
  2. AFINITOR [Suspect]
     Dosage: 10 MG, QD
     Route: 048
     Dates: start: 201108, end: 201202
  3. AFINITOR [Suspect]
     Dosage: 5 MG, QD
     Route: 048
     Dates: start: 201202, end: 20130425
  4. LASILIX [Concomitant]
     Dosage: 40 MG, UNK
     Route: 048
  5. INEXIUM [Concomitant]
     Dosage: 40 MG, QD
     Route: 048
  6. ORACILLIN [Concomitant]
  7. VITAMIN B12 [Concomitant]
  8. PHOSPHORUS [Concomitant]
  9. POTASSIUM CHLORIDE [Concomitant]

REACTIONS (7)
  - Death [Fatal]
  - Cachexia [Fatal]
  - General physical health deterioration [Not Recovered/Not Resolved]
  - Weight decreased [Not Recovered/Not Resolved]
  - Decreased appetite [Not Recovered/Not Resolved]
  - Asthenia [Not Recovered/Not Resolved]
  - Dysgeusia [Recovering/Resolving]
